FAERS Safety Report 16842356 (Version 19)
Quarter: 2020Q3

REPORT INFORMATION
  Report Type: Report from Study
  Country: JP (occurrence: JP)
  Receive Date: 20190924
  Receipt Date: 20200710
  Transmission Date: 20201102
  Serious: Yes (Hospitalization)
  Sender: FDA-Public Use
  Company Number: JP-ROCHE-2341927

PATIENT
  Age: 69 Year
  Sex: Male
  Weight: 45 kg

DRUGS (24)
  1. BEVACIZUMAB. [Suspect]
     Active Substance: BEVACIZUMAB
     Indication: LUNG NEOPLASM MALIGNANT
     Route: 041
     Dates: start: 20190530, end: 20190902
  2. ATEZOLIZUMAB. [Suspect]
     Active Substance: ATEZOLIZUMAB
     Indication: LUNG NEOPLASM MALIGNANT
     Route: 041
     Dates: start: 20190530, end: 20190902
  3. CARBOPLATIN. [Suspect]
     Active Substance: CARBOPLATIN
     Indication: LUNG NEOPLASM MALIGNANT
     Dosage: AUC 5
     Route: 041
     Dates: start: 20190530
  4. LEVOFLOXACIN HEMIHYDRATE [Suspect]
     Active Substance: LEVOFLOXACIN
     Indication: PNEUMONITIS
     Route: 048
     Dates: start: 20190908
  5. BENAMBAX [Concomitant]
     Active Substance: PENTAMIDINE
     Indication: INFECTION PROPHYLAXIS
     Dosage: DOSAGE IS UNCERTAIN.
     Route: 055
     Dates: start: 20191018, end: 20191018
  6. ALIMTA [Suspect]
     Active Substance: PEMETREXED DISODIUM
     Indication: LUNG NEOPLASM MALIGNANT
     Route: 042
     Dates: start: 20190530, end: 20190902
  7. AMLODIPINE [Suspect]
     Active Substance: AMLODIPINE BESYLATE
     Indication: HYPERTENSION
     Route: 048
     Dates: start: 20191123
  8. MAGMITT [Concomitant]
     Active Substance: MAGNESIUM OXIDE
     Indication: CONSTIPATION
     Dosage: AFTER EVERY MEAL
     Route: 048
     Dates: start: 20190523
  9. SENNA [Concomitant]
     Active Substance: SENNA LEAF\SENNOSIDES\SENNOSIDES A AND B
     Indication: CONSTIPATION
     Dosage: AT THE OBSTIPATION
     Route: 048
     Dates: start: 20190523
  10. SAMTIREL [Suspect]
     Active Substance: ATOVAQUONE
     Indication: PROPHYLAXIS
     Dosage: AFTER BREAKFAST
     Route: 048
     Dates: start: 20191023
  11. ELIQUIS [Suspect]
     Active Substance: APIXABAN
     Dosage: SELF ADJUSTMENT 330MG AND 1?2/TIME AT OBSTIPATION
     Route: 048
     Dates: start: 20190523
  12. PREDONINE [Suspect]
     Active Substance: PREDNISOLONE
     Dosage: (WHEN BEGINNING, BE DECREASING GRADUALLY BY 30 MG).
     Route: 042
     Dates: start: 20191210
  13. CALFINA [ALFACALCIDOL] [Suspect]
     Active Substance: ALFACALCIDOL
     Indication: OSTEOPOROSIS PROPHYLAXIS
     Dosage: AFTER BREAKFAST
     Route: 048
     Dates: start: 20191211
  14. FAMOTIDINE. [Suspect]
     Active Substance: FAMOTIDINE
     Indication: PROPHYLAXIS AGAINST GASTROINTESTINAL ULCER
     Dosage: AFTER THE MEAL IN THE MORNING AND EVENING
     Route: 048
     Dates: start: 20191016
  15. LOXOPROFEN [Suspect]
     Active Substance: LOXOPROFEN
     Indication: PYREXIA
  16. AVELOX [Suspect]
     Active Substance: MOXIFLOXACIN HYDROCHLORIDE
     Indication: PNEUMONITIS
     Route: 048
     Dates: start: 20190911, end: 20190912
  17. LIXIANA OD [Suspect]
     Active Substance: EDOXABAN TOSYLATE
     Indication: DRUG ERUPTION
     Dosage: AFTER THE BREAKFAST
     Route: 048
     Dates: start: 20190927
  18. ELIQUIS [Suspect]
     Active Substance: APIXABAN
     Indication: CONSTIPATION
     Dosage: AFTER EVERY MEAL
     Route: 048
     Dates: start: 20190523
  19. TAKECAB [Concomitant]
     Active Substance: VONOPRAZAN FUMARATE
     Indication: PROPHYLAXIS AGAINST GASTROINTESTINAL ULCER
     Dosage: AFTER THE BREAKFAST
     Route: 048
     Dates: start: 20190603
  20. CELLCEPT [Concomitant]
     Active Substance: MYCOPHENOLATE MOFETIL\MYCOPHENOLATE MOFETIL HYDROCHLORIDE
     Route: 048
     Dates: start: 20200102
  21. PREDONINE [Suspect]
     Active Substance: PREDNISOLONE
     Indication: PNEUMONITIS
     Dosage: 20MG(WHEN BEGINNING, BE DECREASING GRADUALLY BY 45MG).
     Route: 042
     Dates: start: 20190912
  22. PREDONINE [Suspect]
     Active Substance: PREDNISOLONE
     Indication: ACUTE KIDNEY INJURY
     Dosage: 20MG(WHEN BEGINNING, BE DECREASING GRADUALLY BY 45MG).
     Route: 042
     Dates: start: 20190912
  23. LOXOPROFEN [Suspect]
     Active Substance: LOXOPROFEN
     Indication: PAIN
     Route: 048
     Dates: start: 20190910, end: 20190911
  24. PREDONINE [Suspect]
     Active Substance: PREDNISOLONE
     Indication: PNEUMONITIS
     Route: 048
     Dates: start: 20191001, end: 20191022

REACTIONS (10)
  - Aspartate aminotransferase increased [Recovered/Resolved]
  - Alanine aminotransferase increased [Recovered/Resolved]
  - Acute kidney injury [Recovered/Resolved]
  - Alanine aminotransferase increased [Recovered/Resolved]
  - Gamma-glutamyltransferase increased [Not Recovered/Not Resolved]
  - Pyrexia [Recovered/Resolved]
  - Pneumonitis [Recovered/Resolved]
  - Aspartate aminotransferase increased [Recovered/Resolved]
  - Meningitis [Recovering/Resolving]
  - Deep vein thrombosis [Recovering/Resolving]

NARRATIVE: CASE EVENT DATE: 20190611
